FAERS Safety Report 26190929 (Version 1)
Quarter: 2025Q4

REPORT INFORMATION
  Report Type: Spontaneous
  Country: US (occurrence: None)
  Receive Date: 20251222
  Receipt Date: 20251222
  Transmission Date: 20260117
  Serious: Yes (Disabling)
  Sender: FDA-CTU
  Company Number: None

PATIENT
  Age: 40 Year
  Sex: Female
  Weight: 56.25 kg

DRUGS (5)
  1. OCELLA [Suspect]
     Active Substance: DROSPIRENONE\ETHINYL ESTRADIOL
     Indication: Menstrual headache
     Dosage: FREQUENCY : DAILY;
     Route: 048
  2. Adalumimab [Concomitant]
  3. SUMATRIPTAN [Concomitant]
     Active Substance: SUMATRIPTAN
  4. IRON [Concomitant]
     Active Substance: IRON
  5. B12 [Concomitant]

REACTIONS (3)
  - Nerve compression [None]
  - Breast pain [None]
  - Breast cancer [None]

NARRATIVE: CASE EVENT DATE: 20240428
